FAERS Safety Report 6329194-8 (Version None)
Quarter: 2009Q3

REPORT INFORMATION
  Report Type: 
  Country: None (occurrence: None)
  Receive Date: 20090826
  Receipt Date: 20090813
  Transmission Date: 20100115
  Serious: Yes (Hospitalization)
  Sender: FDA-Public Use
  Company Number: FR-PFIZER INC-2009254157

PATIENT
  Age: 0 Day

DRUGS (4)
  1. XANAX [Suspect]
     Indication: DEPRESSION
     Dosage: 0.25 MG, 3X/DAY
     Route: 064
     Dates: start: 20081105, end: 20090719
  2. SUBUTEX [Suspect]
     Indication: DRUG DEPENDENCE
     Dosage: 2 MG, 3X/DAY
     Route: 064
     Dates: start: 20081105, end: 20090719
  3. LAROXYL [Suspect]
     Indication: DEPRESSION
     Dosage: 50 MG, 1X/DAY
     Route: 064
     Dates: start: 20081105, end: 20090719
  4. NOZINAN [Suspect]
     Indication: DEPRESSION
     Dosage: 5 MG, 1X/DAY
     Route: 064
     Dates: start: 20081105, end: 20090719

REACTIONS (4)
  - DRUG EXPOSURE DURING PREGNANCY [None]
  - DRUG WITHDRAWAL SYNDROME NEONATAL [None]
  - NEONATAL RESPIRATORY DEPRESSION [None]
  - NEONATAL TACHYCARDIA [None]
